FAERS Safety Report 7300882-X (Version None)
Quarter: 2011Q1

REPORT INFORMATION
  Report Type: 
  Country: None (occurrence: None)
  Receive Date: 20110218
  Receipt Date: 20110215
  Transmission Date: 20110831
  Serious: Yes (Death)
  Sender: FDA-Public Use
  Company Number: PHHY2011US12515

PATIENT
  Sex: Male

DRUGS (1)
  1. EXJADE [Suspect]

REACTIONS (1)
  - DEATH [None]
